FAERS Safety Report 8322838-0 (Version None)
Quarter: 2012Q2

REPORT INFORMATION
  Report Type: 
  Country: None (occurrence: None)
  Receive Date: 20120430
  Receipt Date: 20120424
  Transmission Date: 20120825
  Serious: Yes (Hospitalization)
  Sender: FDA-Public Use
  Company Number: PHHY2012TN034791

PATIENT
  Age: 39 Year
  Sex: Male

DRUGS (8)
  1. ETHAMBUTOL HYDROCHLORIDE [Suspect]
     Dosage: 1600 MG, UNK
     Dates: start: 20101010
  2. METFORMIN HCL [Concomitant]
     Indication: DIABETES MELLITUS
     Dosage: UNK
     Dates: start: 20100601
  3. GLIMEPIRIDE [Concomitant]
     Indication: DIABETES MELLITUS
     Dosage: UNK
     Dates: start: 20100601
  4. RIFAMPICIN [Concomitant]
     Indication: PULMONARY TUBERCULOSIS
     Dosage: 600 MG, UNK
     Dates: start: 20100708
  5. ETHAMBUTOL HYDROCHLORIDE [Suspect]
     Indication: PULMONARY TUBERCULOSIS
     Dosage: 1100 MG, UNK
     Dates: start: 20100708
  6. ISONIAZID [Suspect]
     Dosage: 350 MG, UNK
     Dates: start: 20100413
  7. ISONIAZID [Suspect]
     Indication: PULMONARY TUBERCULOSIS
     Dosage: 300 MG, UNK
     Dates: start: 20100708
  8. PYRAZINAMIDE [Concomitant]
     Indication: PULMONARY TUBERCULOSIS
     Dosage: 1600 MG, UNK
     Dates: start: 20100708

REACTIONS (8)
  - DRUG RASH WITH EOSINOPHILIA AND SYSTEMIC SYMPTOMS [None]
  - PYREXIA [None]
  - HALLUCINATION [None]
  - ALANINE AMINOTRANSFERASE INCREASED [None]
  - RASH MACULO-PAPULAR [None]
  - DYSPNOEA [None]
  - RASH PRURITIC [None]
  - GENERALISED OEDEMA [None]
